FAERS Safety Report 21516220 (Version 3)
Quarter: 2025Q4

REPORT INFORMATION
  Report Type: Spontaneous
  Country: IL (occurrence: US)
  Receive Date: 20221027
  Receipt Date: 20251112
  Transmission Date: 20260118
  Serious: Yes (Hospitalization, Congenital Anomaly)
  Sender: VERTEX
  Company Number: IL-VERTEX PHARMACEUTICALS-2021-009133

PATIENT
  Sex: Male

DRUGS (5)
  1. TRIKAFTA [Suspect]
     Active Substance: ELEXACAFTOR\IVACAFTOR\TEZACAFTOR
     Indication: Cystic fibrosis
     Dosage: UNKNOWN DOSAGE REGIMEN
     Route: 063
     Dates: start: 20191203
  2. MEROPENEM [Concomitant]
     Active Substance: MEROPENEM
     Indication: Achromobacter infection
     Route: 055
  3. MEROPENEM [Concomitant]
     Active Substance: MEROPENEM
     Indication: Stenotrophomonas infection
  4. MEROPENEM [Concomitant]
     Active Substance: MEROPENEM
     Indication: Infective pulmonary exacerbation of cystic fibrosis
  5. SULFAMETHOXAZOLE AND TRIMETHOPRIM [Concomitant]
     Active Substance: SULFAMETHOXAZOLE\TRIMETHOPRIM
     Indication: Infective pulmonary exacerbation of cystic fibrosis

REACTIONS (4)
  - Neonatal pneumonia [Recovering/Resolving]
  - Cataract congenital [Unknown]
  - Exposure via breast milk [Unknown]
  - Neonatal hypoxia [Recovering/Resolving]
